FAERS Safety Report 19261478 (Version 1)
Quarter: 2021Q2

REPORT INFORMATION
  Report Type: Spontaneous
  Country: FR (occurrence: FR)
  Receive Date: 20210515
  Receipt Date: 20210515
  Transmission Date: 20210717
  Serious: Yes (Hospitalization, Other)
  Sender: FDA-Public Use
  Company Number: FR-AUROBINDO-AUR-APL-2021-019199

PATIENT
  Sex: Male

DRUGS (4)
  1. MELPHALAN. [Suspect]
     Active Substance: MELPHALAN
     Indication: LYMPHOMA
     Dosage: 268.8 MILLIGRAM (1 DAY)
     Route: 042
     Dates: start: 20160925, end: 20160925
  2. CYTARABINE. [Suspect]
     Active Substance: CYTARABINE
     Indication: LYMPHOMA
     Dosage: 768 MILLIGRAM (1 DAY)
     Route: 042
     Dates: start: 20160921, end: 20160924
  3. ETOPOSIDE. [Suspect]
     Active Substance: ETOPOSIDE
     Indication: LYMPHOMA
     Dosage: 384 MILLIGRAM (1 DAY)
     Route: 042
     Dates: start: 20160921, end: 20160924
  4. CARMUSTINE. [Suspect]
     Active Substance: CARMUSTINE
     Indication: LYMPHOMA
     Dosage: 576 MILLIGRAM (1 DAY)
     Route: 042
     Dates: start: 20160920, end: 20160920

REACTIONS (4)
  - Device related infection [Recovered/Resolved]
  - Diarrhoea [Recovered/Resolved]
  - Febrile bone marrow aplasia [Recovered/Resolved]
  - Colitis [Recovered/Resolved]

NARRATIVE: CASE EVENT DATE: 20160924
